FAERS Safety Report 20336558 (Version 1)
Quarter: 2022Q1

REPORT INFORMATION
  Report Type: Spontaneous
  Country: US (occurrence: None)
  Receive Date: 20220114
  Receipt Date: 20220114
  Transmission Date: 20220424
  Serious: Yes (Hospitalization, Other)
  Sender: FDA-Public Use
  Company Number: None

PATIENT
  Age: 41 Year
  Sex: Female
  Weight: 47.25 kg

DRUGS (2)
  1. HYLENEX RECOMBINANT [Suspect]
     Active Substance: HYALURONIDASE (HUMAN RECOMBINANT)
     Indication: Skin cosmetic procedure
     Dates: start: 20210319, end: 20210429
  2. DESMOPRESSIN [Concomitant]
     Active Substance: DESMOPRESSIN

REACTIONS (15)
  - Burning sensation [None]
  - Weight decreased [None]
  - Muscle atrophy [None]
  - Dry eye [None]
  - Keratitis [None]
  - Lid sulcus deepened [None]
  - Vision blurred [None]
  - Facial wasting [None]
  - Skin atrophy [None]
  - Arthralgia [None]
  - Thirst [None]
  - Fatigue [None]
  - Soft tissue disorder [None]
  - Muscle disorder [None]
  - Swelling [None]

NARRATIVE: CASE EVENT DATE: 20210429
